FAERS Safety Report 9800092 (Version 2)
Quarter: 2014Q1

REPORT INFORMATION
  Report Type: Spontaneous
  Country: US (occurrence: US)
  Receive Date: 20140106
  Receipt Date: 20140106
  Transmission Date: 20141002
  Serious: Yes (Hospitalization)
  Sender: FDA-Public Use
  Company Number: US-GILEAD-2010-0032512

PATIENT
  Age: 75 Year
  Sex: Male
  Weight: 61.23 kg

DRUGS (24)
  1. LETAIRIS [Suspect]
     Indication: PULMONARY ARTERIAL HYPERTENSION
     Route: 048
     Dates: start: 20101001, end: 20101007
  2. REVATIO [Concomitant]
  3. WARFARIN [Concomitant]
  4. FUROSEMIDE [Concomitant]
  5. TAMSULOSIN [Concomitant]
  6. HYDRALAZINE [Concomitant]
  7. METOPROLOL [Concomitant]
  8. LOSARTAN [Concomitant]
  9. TEMAZEPAM [Concomitant]
  10. ISOSORBIDE DN [Concomitant]
  11. LIPITOR [Concomitant]
  12. PREDNISONE [Concomitant]
  13. CENTRUM SILVER [Concomitant]
  14. ANDROGEL [Concomitant]
  15. OSCAL [Concomitant]
  16. AVODART [Concomitant]
  17. SYMBICORT [Concomitant]
  18. LEVOXYL [Concomitant]
  19. VITAMIN D3 [Concomitant]
  20. LUCENTIS [Concomitant]
  21. STOOL SOFTNER [Concomitant]
  22. MIRALAX [Concomitant]
  23. ARANESP [Concomitant]
  24. CALCIUM [Concomitant]

REACTIONS (2)
  - Dyspnoea [Unknown]
  - Oedema peripheral [Unknown]
